FAERS Safety Report 13387008 (Version 2)
Quarter: 2017Q2

REPORT INFORMATION
  Report Type: Spontaneous
  Country: DE (occurrence: DE)
  Receive Date: 20170330
  Receipt Date: 20170505
  Transmission Date: 20170830
  Serious: Yes (Hospitalization, Other)
  Sender: FDA-Public Use
  Company Number: PHHY2017DE044589

PATIENT
  Sex: Male
  Weight: 15.8 kg

DRUGS (3)
  1. ILARIS [Suspect]
     Active Substance: CANAKINUMAB
     Indication: STILL^S DISEASE
     Dosage: 64.5 MG, EVERY 4 WEEKS
     Route: 042
     Dates: start: 20101013, end: 20130523
  2. MTX [Concomitant]
     Active Substance: METHOTREXATE SODIUM
     Indication: STILL^S DISEASE
     Dosage: 7.5 MG, WEEKLY
     Route: 048
     Dates: start: 20120423, end: 20130607
  3. MTX [Concomitant]
     Active Substance: METHOTREXATE SODIUM
     Dosage: UNK
     Route: 065
     Dates: start: 20131126

REACTIONS (3)
  - Incorrect route of drug administration [Unknown]
  - Histiocytosis haematophagic [Recovered/Resolved]
  - Aspartate aminotransferase increased [Unknown]

NARRATIVE: CASE EVENT DATE: 20101013
